FAERS Safety Report 8441801 (Version 5)
Quarter: 2013Q2

REPORT INFORMATION
  Report Type: Spontaneous
  Country: GB (occurrence: GB)
  Receive Date: 20120305
  Receipt Date: 20130627
  Transmission Date: 20140414
  Serious: Yes (Disabling)
  Sender: FDA-Public Use
  Company Number: GB-PFIZER INC-2012051887

PATIENT
  Age: 47 Year
  Sex: Male
  Weight: 96.9 kg

DRUGS (28)
  1. AMLODIPINE BESILATE [Suspect]
     Dosage: 5 MG, 1X/DAY
     Dates: start: 20120117, end: 20120131
  2. ACETYLSALICYLIC ACID [Concomitant]
     Dosage: UNK
     Dates: start: 20111110, end: 20111208
  3. ACETYLSALICYLIC ACID [Concomitant]
     Dosage: UNK
     Dates: start: 20111213, end: 20120208
  4. BENDROFLUMETHIAZIDE [Concomitant]
     Dosage: UNK
     Dates: start: 20111110, end: 20111208
  5. BENDROFLUMETHIAZIDE [Concomitant]
     Dosage: UNK
     Dates: start: 20111213, end: 20120208
  6. BETAMETHASONE VALERATE [Concomitant]
     Dosage: UNK
     Dates: start: 20120117, end: 20120214
  7. BISOPROLOL [Concomitant]
     Dosage: UNK
     Dates: start: 20111110, end: 20111208
  8. BISOPROLOL [Concomitant]
     Dosage: UNK
     Dates: start: 20111213, end: 20120208
  9. CINCHOCAINE [Concomitant]
     Dosage: UNK
     Dates: start: 20111125, end: 20111205
  10. EPILIM [Concomitant]
     Dosage: UNK
     Dates: start: 20111110, end: 20111208
  11. EPILIM [Concomitant]
     Dosage: UNK
     Dates: start: 20111213, end: 20120208
  12. GLYCEROL [Concomitant]
     Dosage: UNK
     Dates: start: 20111207, end: 20111209
  13. GLYCERYL TRINITRATE [Concomitant]
     Dosage: UNK
     Dates: start: 20111025, end: 20111209
  14. GLYCERYL TRINITRATE [Concomitant]
     Dosage: UNK
     Dates: start: 20111213, end: 20120208
  15. LAXIDO [Concomitant]
     Dosage: UNK
     Dates: start: 20111110, end: 20111208
  16. LAXIDO [Concomitant]
     Dosage: UNK
     Dates: start: 20111213, end: 20120208
  17. OMEPRAZOLE [Concomitant]
     Dosage: UNK
     Dates: start: 20111110, end: 20111208
  18. OMEPRAZOLE [Concomitant]
     Dosage: UNK
     Dates: start: 20111213, end: 20120208
  19. OTOMIZE [Concomitant]
     Dosage: UNK
     Dates: start: 20111114, end: 20111205
  20. PARACETAMOL [Concomitant]
     Dosage: UNK
     Dates: start: 20111110, end: 20111208
  21. PARACETAMOL [Concomitant]
     Dosage: UNK
     Dates: start: 20111213, end: 20120208
  22. PROCTOSEDYL ^HOECHST^ [Concomitant]
     Dosage: UNK
     Dates: start: 20111025, end: 20111209
  23. PROCTOSEDYL ^HOECHST^ [Concomitant]
     Dosage: UNK
     Dates: start: 20111213, end: 20120208
  24. RAMIPRIL [Concomitant]
     Dosage: UNK
     Dates: start: 20111110, end: 20111208
  25. RAMIPRIL [Concomitant]
     Dosage: UNK
     Dates: start: 20111213, end: 20120208
  26. SENNA [Concomitant]
     Dosage: UNK
     Dates: start: 20111130, end: 20111228
  27. SIMVASTATIN [Concomitant]
     Dosage: UNK
     Dates: start: 20111110, end: 20111208
  28. SIMVASTATIN [Concomitant]
     Dosage: UNK
     Dates: start: 20111213, end: 20120208

REACTIONS (1)
  - Epilepsy [Recovered/Resolved]
